FAERS Safety Report 7208062-3 (Version None)
Quarter: 2011Q1

REPORT INFORMATION
  Report Type: 
  Country: None (occurrence: None)
  Receive Date: 20110104
  Receipt Date: 20110103
  Transmission Date: 20110831
  Serious: No
  Sender: FDA-Public Use
  Company Number: US-PFIZER INC-2011000983

PATIENT
  Sex: Male
  Weight: 96 kg

DRUGS (1)
  1. TYGACIL [Suspect]
     Dosage: 50 MG, 2X/DAY
     Dates: start: 20101218, end: 20101230

REACTIONS (2)
  - LIVER DISORDER [None]
  - LIVER FUNCTION TEST ABNORMAL [None]
